FAERS Safety Report 4935080-8 (Version None)
Quarter: 2006Q1

REPORT INFORMATION
  Report Type: 
  Country: None (occurrence: None)
  Receive Date: 20060303
  Receipt Date: 20060303
  Transmission Date: 20060701
  Serious: No
  Sender: FDA-Public Use
  Company Number: None

PATIENT
  Age: 58 Year
  Sex: Female
  Weight: 97.977 kg

DRUGS (2)
  1. METFORMIN [Suspect]
     Indication: DIABETES MELLITUS NON-INSULIN-DEPENDENT
     Dosage: 2 TABS AM 1 TAB PM
     Dates: start: 20060221, end: 20060301
  2. METFORMIN [Suspect]
     Indication: REFUSAL OF TREATMENT BY PATIENT
     Dosage: 2 TABS AM 1 TAB PM
     Dates: start: 20060221, end: 20060301

REACTIONS (8)
  - ABDOMINAL PAIN [None]
  - ASTHENIA [None]
  - CHILLS [None]
  - FATIGUE [None]
  - FEELING COLD [None]
  - NAUSEA [None]
  - RETCHING [None]
  - VIRAL INFECTION [None]
